FAERS Safety Report 21341753 (Version 1)
Quarter: 2022Q3

REPORT INFORMATION
  Report Type: Spontaneous
  Country: US (occurrence: None)
  Receive Date: 20220915
  Receipt Date: 20220915
  Transmission Date: 20221027
  Serious: No
  Sender: FDA-Public Use
  Company Number: None

PATIENT
  Sex: Female

DRUGS (1)
  1. TREMFYA [Suspect]
     Active Substance: GUSELKUMAB
     Indication: Psoriasis
     Dosage: OTHER FREQUENCY : WK 4, THEN Q 8 WKS;?INJECT 1 PEN UNDER THE SKIN AT WEEK 4, THEN EVERY 8 WEEKS THER
     Route: 058
     Dates: start: 20220706

REACTIONS (3)
  - Pruritus [None]
  - Skin burning sensation [None]
  - Skin exfoliation [None]
